FAERS Safety Report 8783673 (Version 1)
Quarter: 2012Q4

REPORT INFORMATION
  Report Type: Report from Study
  Country: US (occurrence: US)
  Receive Date: 20120913
  Receipt Date: 20120913
  Transmission Date: 20130627
  Serious: No
  Sender: FDA-Public Use
  Company Number: US-VERTEX PHARMACEUTICAL INC.-AE-2012-008507

PATIENT
  Age: 51 Year
  Sex: Female

DRUGS (4)
  1. INCIVEK [Suspect]
     Indication: HEPATITIS C
     Route: 048
  2. MIGRAINE RELIEF [Concomitant]
  3. CENTRUM [Concomitant]
  4. WEIGHT LOSS TAB MULTI [Concomitant]
     Indication: WEIGHT DECREASED

REACTIONS (3)
  - Arthralgia [Unknown]
  - Anorectal discomfort [Unknown]
  - Nausea [Unknown]
